FAERS Safety Report 5300965-X (Version None)
Quarter: 2007Q2

REPORT INFORMATION
  Report Type: 
  Country: None (occurrence: None)
  Receive Date: 20070411
  Receipt Date: 20070405
  Transmission Date: 20071010
  Serious: Yes (Death)
  Sender: FDA-Public Use
  Company Number: 163-20785-06101001

PATIENT
  Age: 68 Year
  Sex: Male

DRUGS (1)
  1. THALOMID [Suspect]
     Indication: OMENTUM NEOPLASM
     Dosage: 100 MG, 1 IN 1 D, ORAL
     Route: 048
     Dates: start: 20051001, end: 20061001

REACTIONS (1)
  - DEATH [None]
